FAERS Safety Report 22039792 (Version 3)
Quarter: 2023Q2

REPORT INFORMATION
  Report Type: Spontaneous
  Country: AR (occurrence: AR)
  Receive Date: 20230227
  Receipt Date: 20230414
  Transmission Date: 20230721
  Serious: No
  Sender: FDA-Public Use
  Company Number: AR-PFIZER INC-PV202300030141

PATIENT
  Age: 7 Month
  Sex: Female

DRUGS (1)
  1. GENOTROPIN [Suspect]
     Active Substance: SOMATROPIN
     Indication: Hypopituitarism
     Dosage: 0.1 MG, 7 TIMES PER WEEK
     Dates: start: 20220831

REACTIONS (5)
  - Wrong technique in device usage process [Not Recovered/Not Resolved]
  - Device physical property issue [Not Recovered/Not Resolved]
  - Device breakage [Not Recovered/Not Resolved]
  - Device leakage [Not Recovered/Not Resolved]
  - Drug dose omission by device [Not Recovered/Not Resolved]
